FAERS Safety Report 11137776 (Version 1)
Quarter: 2015Q2

REPORT INFORMATION
  Report Type: Spontaneous
  Country: US (occurrence: US)
  Receive Date: 20150526
  Receipt Date: 20150526
  Transmission Date: 20150821
  Serious: No
  Sender: FDA-Public Use
  Company Number: US-MALLINCKRODT-T201500969

PATIENT
  Age: 32 Year
  Sex: Female
  Weight: 54 kg

DRUGS (3)
  1. ALPRAZOLAM. [Concomitant]
     Active Substance: ALPRAZOLAM
     Dosage: 0.25 MG, 1/2 TABLET QD
  2. H.P. ACTHAR [Suspect]
     Active Substance: CORTICOTROPIN
     Indication: OPTIC NEURITIS
  3. H.P. ACTHAR [Suspect]
     Active Substance: CORTICOTROPIN
     Indication: MULTIPLE SCLEROSIS RELAPSE
     Dosage: UNK, ONCE DAILY X 5 DAYS
     Route: 058
     Dates: start: 20150121

REACTIONS (2)
  - Drug ineffective [Not Recovered/Not Resolved]
  - Somnolence [Not Recovered/Not Resolved]

NARRATIVE: CASE EVENT DATE: 201501
